FAERS Safety Report 19599385 (Version 1)
Quarter: 2021Q3

REPORT INFORMATION
  Report Type: Spontaneous
  Country: US (occurrence: US)
  Receive Date: 20210723
  Receipt Date: 20210723
  Transmission Date: 20211014
  Serious: No
  Sender: FDA-Public Use
  Company Number: None

PATIENT
  Age: 61 Year
  Sex: Male
  Weight: 72 kg

DRUGS (8)
  1. COLACE [Concomitant]
     Active Substance: DOCUSATE SODIUM
  2. CA [Concomitant]
  3. MG CITRATE [Concomitant]
  4. DUPIXENT [Concomitant]
     Active Substance: DUPILUMAB
  5. ASMANEX [Concomitant]
     Active Substance: MOMETASONE FUROATE
  6. MDI [Concomitant]
  7. LEVALBUTEROL TARTRATE HFA 200 METERED DOSES [Suspect]
     Active Substance: LEVALBUTEROL TARTRATE
     Indication: ASTHMA
     Dosage: ?          QUANTITY:200 INHALATION(S);?
     Route: 055
     Dates: start: 20210507, end: 20210531
  8. FLONASE [Concomitant]
     Active Substance: FLUTICASONE PROPIONATE

REACTIONS (4)
  - Device delivery system issue [None]
  - Stress [None]
  - Incorrect dose administered by device [None]
  - Product complaint [None]

NARRATIVE: CASE EVENT DATE: 20210611
